FAERS Safety Report 9967173 (Version 2)
Quarter: 2014Q1

REPORT INFORMATION
  Report Type: Report from Study
  Country: US (occurrence: US)
  Receive Date: 20140305
  Receipt Date: 20140305
  Transmission Date: 20141002
  Serious: Yes (Hospitalization)
  Sender: FDA-Public Use
  Company Number: US-ROCHE-1102164

PATIENT
  Age: 38 Year
  Sex: Male
  Weight: 103.9 kg

DRUGS (45)
  1. OBINUTUZUMAB [Suspect]
     Indication: NON-HODGKIN^S LYMPHOMA
     Dosage: DATE OF LAST DOSE PRIOR TO SAE 24/JUL/2012
     Route: 042
     Dates: start: 20120424, end: 20121002
  2. PREDNISONE [Suspect]
     Indication: NON-HODGKIN^S LYMPHOMA
     Dosage: DATE OF LAST DOSE PRIOR TO SAE 28/JUL/2012
     Route: 042
     Dates: start: 20120424, end: 20120814
  3. CYCLOPHOSPHAMIDE [Suspect]
     Indication: NON-HODGKIN^S LYMPHOMA
     Dosage: DATE OF LAST DOSE PRIOR TO SAE 24/JUL/2012
     Route: 042
     Dates: start: 20120424, end: 20120814
  4. DOXORUBICIN [Suspect]
     Indication: NON-HODGKIN^S LYMPHOMA
     Dosage: DATE OF LAST DOSE PRIOR TO SAE 24/JUL/2012
     Route: 042
     Dates: start: 20120424, end: 20120814
  5. VINCRISTINE [Suspect]
     Indication: NON-HODGKIN^S LYMPHOMA
     Dosage: DATE OF LAST DOSE PRIOR TO SAE 24/JUL/2012
     Route: 042
     Dates: start: 20120424, end: 20120814
  6. ALLOPURINOL [Concomitant]
     Indication: GOUT
     Route: 065
     Dates: start: 20120420, end: 20120906
  7. ALLOPURINOL [Concomitant]
     Route: 065
     Dates: start: 20121102, end: 20121106
  8. LORAZEPAM [Concomitant]
     Indication: ANXIETY
     Route: 065
     Dates: start: 20120419, end: 20121002
  9. LORAZEPAM [Concomitant]
     Route: 065
     Dates: start: 20121031, end: 20121106
  10. SYNTHROID [Concomitant]
     Indication: HYPOTHYROIDISM
     Route: 065
     Dates: start: 20101025
  11. COMPAZINE [Concomitant]
     Indication: NAUSEA
     Route: 065
     Dates: start: 20120424, end: 20121002
  12. PRILOSEC [Concomitant]
     Indication: GASTROOESOPHAGEAL REFLUX DISEASE
     Route: 065
     Dates: start: 20120425
  13. ZOFRAN [Concomitant]
     Indication: NAUSEA
     Route: 065
     Dates: start: 20120425
  14. ZOFRAN [Concomitant]
     Indication: VOMITING
     Route: 065
     Dates: start: 20120703, end: 20120703
  15. ZOFRAN [Concomitant]
     Indication: PREMEDICATION
     Route: 065
     Dates: start: 20120724, end: 20120724
  16. ZOFRAN [Concomitant]
     Route: 065
     Dates: start: 20120802, end: 20120803
  17. ZOFRAN [Concomitant]
     Route: 065
     Dates: start: 20121102, end: 20121104
  18. TESSALON PERLE [Concomitant]
     Indication: COUGH
     Route: 065
     Dates: start: 20120508, end: 20121030
  19. GUAIFENESIN/CODEINE [Concomitant]
     Indication: COUGH
     Route: 065
     Dates: start: 20120711, end: 20121002
  20. BENADRYL (UNITED STATES) [Concomitant]
     Route: 065
     Dates: start: 20120703, end: 20120703
  21. BENADRYL (UNITED STATES) [Concomitant]
     Route: 065
     Dates: start: 20120724, end: 20120724
  22. BENADRYL (UNITED STATES) [Concomitant]
     Route: 065
     Dates: start: 20121002, end: 20121002
  23. TYLENOL [Concomitant]
     Indication: PREMEDICATION
     Route: 065
     Dates: start: 20120703, end: 20120703
  24. TYLENOL [Concomitant]
     Indication: BONE PAIN
     Route: 065
     Dates: start: 20120724, end: 20120724
  25. TYLENOL [Concomitant]
     Route: 065
     Dates: start: 20120802, end: 20120803
  26. TYLENOL [Concomitant]
     Route: 065
     Dates: start: 20121002, end: 20121002
  27. AZITHROMYCIN [Concomitant]
     Indication: COUGH
     Route: 065
     Dates: start: 20120703, end: 20121002
  28. ATIVAN [Concomitant]
     Indication: PROPHYLAXIS
     Route: 065
     Dates: start: 20120424, end: 20121002
  29. BENZONATATE [Concomitant]
     Indication: COUGH
     Route: 065
     Dates: start: 20120802, end: 20120803
  30. AVELOX [Concomitant]
     Indication: SINUSITIS
     Route: 065
     Dates: start: 20120802, end: 20120806
  31. AVELOX [Concomitant]
     Route: 065
     Dates: start: 20120925, end: 20121001
  32. DOCUSATE SODIUM [Concomitant]
     Indication: CONSTIPATION PROPHYLAXIS
     Route: 065
     Dates: start: 20120802, end: 20120803
  33. SENNALAX (UNITED STATES) [Concomitant]
     Indication: CONSTIPATION PROPHYLAXIS
     Route: 065
     Dates: start: 20120802, end: 20120803
  34. HYCODAN (CANADA) [Concomitant]
     Indication: COUGH
     Route: 065
     Dates: start: 20120802, end: 20120803
  35. POLYETHYLENE GLYCOL [Concomitant]
     Indication: CONSTIPATION PROPHYLAXIS
     Route: 065
     Dates: start: 20120802, end: 20120803
  36. POLYETHYLENE GLYCOL [Concomitant]
     Route: 065
     Dates: start: 20120814
  37. POLYETHYLENE GLYCOL [Concomitant]
     Route: 065
     Dates: start: 20121031, end: 20121106
  38. ACYCLOVIR [Concomitant]
     Indication: ANTIVIRAL PROPHYLAXIS
     Route: 065
     Dates: start: 20120925
  39. ACYCLOVIR [Concomitant]
     Route: 065
     Dates: start: 20121102, end: 20121106
  40. SENNA-S [Concomitant]
     Indication: CONSTIPATION PROPHYLAXIS
  41. MORPHINE [Concomitant]
     Indication: BONE PAIN
     Route: 048
     Dates: start: 20121030, end: 20121105
  42. MORPHINE [Concomitant]
     Route: 042
     Dates: start: 20121031, end: 20121031
  43. MORPHINE [Concomitant]
     Route: 042
     Dates: start: 20121030, end: 20121106
  44. NEXIUM [Concomitant]
  45. BISACODYL [Concomitant]
     Indication: CONSTIPATION PROPHYLAXIS

REACTIONS (2)
  - Febrile neutropenia [Recovered/Resolved]
  - Febrile neutropenia [Recovered/Resolved]
